APPROVED DRUG PRODUCT: UROBAK
Active Ingredient: SULFAMETHOXAZOLE
Strength: 500MG
Dosage Form/Route: TABLET;ORAL
Application: A087307 | Product #001
Applicant: SHIONOGI USA INC
Approved: Approved Prior to Jan 1, 1982 | RLD: No | RS: No | Type: DISCN